FAERS Safety Report 4465778-X (Version None)
Quarter: 2004Q4

REPORT INFORMATION
  Report Type: 
  Country: None (occurrence: None)
  Receive Date: 20041005
  Receipt Date: 20040928
  Transmission Date: 20050328
  Serious: Yes (Hospitalization)
  Sender: FDA-Public Use
  Company Number: US-JNJFOC-20040909911

PATIENT
  Age: 73 Year
  Sex: Male

DRUGS (16)
  1. INFLIXIMAB [Suspect]
     Indication: RHEUMATOID ARTHRITIS
     Route: 042
  2. FLOMAX [Concomitant]
  3. ALLOPURINOL [Concomitant]
  4. LEXAPRO [Concomitant]
  5. LORCET-HD [Concomitant]
  6. LORCET-HD [Concomitant]
     Dosage: 10/650 MG
  7. GLUCOTROL XL [Concomitant]
  8. NEXIUM [Concomitant]
  9. COLACE [Concomitant]
  10. XANAX [Concomitant]
  11. ANTIVERT [Concomitant]
  12. ANTIVERT [Concomitant]
  13. TOPROL-XL [Concomitant]
  14. LASIX [Concomitant]
     Dosage: AM
  15. QUINERVA [Concomitant]
  16. LANOXIN [Concomitant]

REACTIONS (1)
  - CHRONIC OBSTRUCTIVE AIRWAYS DISEASE EXACERBATED [None]
